FAERS Safety Report 7433906-X (Version None)
Quarter: 2011Q2

REPORT INFORMATION
  Report Type: 
  Country: None (occurrence: None)
  Receive Date: 20110420
  Receipt Date: 20110420
  Transmission Date: 20111010
  Serious: Yes (Life-Threatening, Hospitalization, Disabling)
  Sender: FDA-Public Use
  Company Number: None

PATIENT
  Age: 56 Year
  Sex: Female
  Weight: 90.7194 kg

DRUGS (1)
  1. FEMARA [Suspect]
     Indication: BREAST CANCER
     Dosage: 1 ABLET PER DAY PO
     Route: 048
     Dates: start: 20090428, end: 20110408

REACTIONS (7)
  - PULMONARY EMBOLISM [None]
  - BLOOD CHOLESTEROL INCREASED [None]
  - PALPITATIONS [None]
  - ARTHRALGIA [None]
  - BONE PAIN [None]
  - BLOOD PRESSURE INCREASED [None]
  - WHITE BLOOD CELL COUNT DECREASED [None]
